FAERS Safety Report 4307100-5 (Version None)
Quarter: 2004Q1

REPORT INFORMATION
  Report Type: 
  Country: None (occurrence: None)
  Receive Date: 20040227
  Receipt Date: 20040224
  Transmission Date: 20041129
  Serious: Yes (Hospitalization)
  Sender: FDA-Public Use
  Company Number: CA-BRISTOL-MYERS SQUIBB COMPANY-12514857

PATIENT
  Age: 65 Year
  Sex: Male
  Weight: 74 kg

DRUGS (3)
  1. ACETYLSALICYLIC ACID SRT [Suspect]
     Indication: ATRIAL FIBRILLATION
     Route: 048
     Dates: start: 20020501
  2. WARFARIN SODIUM [Suspect]
     Indication: ATRIAL FIBRILLATION
     Route: 048
     Dates: start: 20020501
  3. LESCOL [Concomitant]
     Indication: RENAL TRANSPLANT
     Dates: start: 19991021, end: 20020916

REACTIONS (11)
  - CHOLECYSTECTOMY [None]
  - DIZZINESS [None]
  - FAECES DISCOLOURED [None]
  - GASTRIC ULCER [None]
  - GASTROINTESTINAL HAEMORRHAGE [None]
  - GASTROINTESTINAL STROMAL TUMOUR [None]
  - INTERNATIONAL NORMALISED RATIO INCREASED [None]
  - SPLENECTOMY [None]
  - SURGERY [None]
  - TUMOUR ULCERATION [None]
  - VERTIGO [None]
